FAERS Safety Report 9537748 (Version 2)
Quarter: 2013Q3

REPORT INFORMATION
  Report Type: Spontaneous
  Country: US (occurrence: US)
  Receive Date: 20130919
  Receipt Date: 20130923
  Transmission Date: 20140515
  Serious: Yes (Hospitalization)
  Sender: FDA-Public Use
  Company Number: US-ASTRAZENECA-2013SE68685

PATIENT
  Age: 13 Week
  Sex: Female
  Weight: 4.1 kg

DRUGS (7)
  1. SYNAGIS [Suspect]
     Indication: PREMATURE BABY
     Dosage: FIRST DOSE GIVEN IN THE NICU DURING THE BIRTH HOSPITALIZATION
     Route: 030
  2. SYNAGIS [Suspect]
     Indication: ANTIVIRAL PROPHYLAXIS
     Dosage: FIRST DOSE GIVEN IN THE NICU DURING THE BIRTH HOSPITALIZATION
     Route: 030
  3. SYNAGIS [Suspect]
     Indication: PREMATURE BABY
     Dosage: SECOND DOSE GIVEN 48MG IM, PT WEIGHTED 7 LBS IT WAS GIVEN IN THE DRS OFFICE
     Route: 030
     Dates: start: 20130816
  4. SYNAGIS [Suspect]
     Indication: ANTIVIRAL PROPHYLAXIS
     Dosage: SECOND DOSE GIVEN 48MG IM, PT WEIGHTED 7 LBS IT WAS GIVEN IN THE DRS OFFICE
     Route: 030
     Dates: start: 20130816
  5. RANITIDINE [Concomitant]
  6. FERROUS SULFATE [Concomitant]
  7. LITTLE REMEDY MEDICATION [Concomitant]

REACTIONS (2)
  - Gastrooesophageal reflux disease [Unknown]
  - Apnoea [Unknown]
